FAERS Safety Report 7369926-3 (Version None)
Quarter: 2011Q1

REPORT INFORMATION
  Report Type: 
  Country: None (occurrence: None)
  Receive Date: 20110323
  Receipt Date: 20110318
  Transmission Date: 20110831
  Serious: Yes (Other)
  Sender: FDA-Public Use
  Company Number: GB-PFIZER INC-2011036280

PATIENT
  Age: 29 Year
  Sex: Female
  Weight: 50 kg

DRUGS (3)
  1. ZOTON [Concomitant]
     Indication: RETT'S DISORDER
     Dosage: 30 MG, 2X/DAY
     Route: 048
  2. EPANUTIN [Suspect]
     Dosage: 180 MG, 2X/DAY
     Route: 048
  3. EPANUTIN [Suspect]
     Indication: RETT'S DISORDER
     Dosage: 150 MG

REACTIONS (3)
  - SWELLING [None]
  - ENLARGED CLITORIS [None]
  - GINGIVAL HYPERPLASIA [None]
